FAERS Safety Report 24996032 (Version 1)
Quarter: 2025Q1

REPORT INFORMATION
  Report Type: Spontaneous
  Country: US (occurrence: US)
  Receive Date: 20250221
  Receipt Date: 20250221
  Transmission Date: 20250409
  Serious: Yes (Other)
  Sender: CATALYST PHARMA
  Company Number: US-CATALYST PHARMACEUTICALS-US-CATA-24-01603

PATIENT
  Age: 14 Year
  Sex: Male
  Weight: 36.3 kg

DRUGS (16)
  1. AGAMREE [Suspect]
     Active Substance: VAMOROLONE
     Indication: Duchenne muscular dystrophy
     Dosage: 5.3 ML PER DAY
     Route: 048
     Dates: start: 20241124
  2. ALBUTEROL [Concomitant]
     Active Substance: ALBUTEROL
     Indication: Asthma
     Route: 055
  3. ALENDRONATE [Concomitant]
     Active Substance: ALENDRONATE SODIUM
     Indication: Osteopenia
     Dosage: 35 MG EVERY THURSDAY
     Route: 065
  4. AMONDYS 45 [Concomitant]
     Active Substance: CASIMERSEN
     Indication: Duchenne muscular dystrophy
     Dosage: 1100 MG WEEKLY
     Route: 042
     Dates: start: 2016
  5. ATOMOXETINE [Concomitant]
     Active Substance: ATOMOXETINE
     Indication: Attention deficit hyperactivity disorder
     Dosage: 20 MG DAILY
     Route: 065
  6. ESCITALOPRAM [Concomitant]
     Active Substance: ESCITALOPRAM OXALATE
     Indication: Anxiety
     Dosage: 10 MG DAILY
     Route: 065
  7. LEVOTHYROXINE [Concomitant]
     Active Substance: LEVOTHYROXINE
     Indication: Hypothyroidism
     Dosage: 50 MCG DAILY
     Route: 065
  8. LISINOPRIL [Concomitant]
     Active Substance: LISINOPRIL
     Indication: Cardiovascular disorder
     Dosage: 5 MG DAILY
     Route: 065
  9. MIRALAX [Concomitant]
     Active Substance: POLYETHYLENE GLYCOL 3350
     Indication: Constipation
     Dosage: 17 G DAILY
     Route: 065
  10. VITAMINS [Concomitant]
     Active Substance: VITAMINS
     Indication: Hypovitaminosis
     Dosage: ONE TABLET DAILY
     Route: 065
  11. POTASSIUM CHLORIDE [Concomitant]
     Active Substance: POTASSIUM CHLORIDE
     Indication: Hypokalaemia
     Dosage: 10 MEQ TWICE A DAY
     Route: 065
  12. ALBUTEROL [Concomitant]
     Active Substance: ALBUTEROL
     Indication: Asthma
     Route: 055
  13. SKYTROFA [Concomitant]
     Active Substance: LONAPEGSOMATROPIN-TCGD
     Indication: Delayed puberty
     Route: 058
  14. TRAZODONE [Concomitant]
     Active Substance: TRAZODONE HYDROCHLORIDE
     Indication: Insomnia
     Dosage: 12.5 MG AT BEDTIME
     Route: 065
  15. VITAMIN C [Concomitant]
     Active Substance: ASCORBIC ACID
     Indication: Immune enhancement therapy
     Dosage: 500 MG DAILY
     Route: 065
  16. TESSALON [Concomitant]
     Active Substance: BENZONATATE
     Indication: Cough
     Dosage: 200 MG EVERY 8 HOURS
     Route: 048
     Dates: start: 20241226, end: 20250113

REACTIONS (2)
  - Atypical pneumonia [Not Recovered/Not Resolved]
  - COVID-19 [Recovered/Resolved]

NARRATIVE: CASE EVENT DATE: 20241201
